FAERS Safety Report 7440454-X (Version None)
Quarter: 2011Q2

REPORT INFORMATION
  Report Type: 
  Country: None (occurrence: None)
  Receive Date: 20110427
  Receipt Date: 20110413
  Transmission Date: 20111010
  Serious: Yes (Other)
  Sender: FDA-Public Use
  Company Number: CA-JNJFOC-20110406261

PATIENT
  Sex: Male
  Weight: 120 kg

DRUGS (11)
  1. NAPROSYN [Concomitant]
     Route: 048
  2. ASPIRIN [Concomitant]
     Route: 048
  3. VITAMIN TAB [Concomitant]
     Route: 048
  4. NITRO PATCH (NITROGLYCERIN) [Concomitant]
     Route: 065
  5. REMICADE [Suspect]
     Indication: CROHN'S DISEASE
     Route: 042
  6. HYDROMORPHONE [Concomitant]
     Route: 048
  7. ZANTAC [Concomitant]
     Route: 048
  8. MICRO-K [Concomitant]
     Route: 048
  9. AZATHIOPRINE [Concomitant]
     Dosage: FOR YEARS
     Route: 048
  10. LASIX [Concomitant]
     Route: 048
  11. GABAPENTIN [Concomitant]
     Route: 048

REACTIONS (4)
  - BLOOD PRESSURE INCREASED [None]
  - OEDEMA PERIPHERAL [None]
  - CHEST PAIN [None]
  - DYSPNOEA EXERTIONAL [None]
